FAERS Safety Report 8988998 (Version 4)
Quarter: 2013Q2

REPORT INFORMATION
  Report Type: Report from Study
  Country: CA (occurrence: CA)
  Receive Date: 20121227
  Receipt Date: 20130627
  Transmission Date: 20140414
  Serious: Yes (Hospitalization, Other)
  Sender: FDA-Public Use
  Company Number: CA-ABBOTT-12P-028-1023850-00

PATIENT
  Age: 47 Year
  Sex: Female

DRUGS (6)
  1. HUMIRA [Suspect]
     Indication: CROHN^S DISEASE
     Route: 058
     Dates: end: 20090909
  2. HUMIRA [Suspect]
     Route: 058
     Dates: start: 20090909, end: 20111123
  3. BENTYLOL [Concomitant]
     Indication: ABDOMINAL PAIN
     Dates: start: 200905
  4. XAMIOL [Concomitant]
     Indication: DERMATITIS PSORIASIFORM
     Dates: start: 20110125
  5. BETADERM [Concomitant]
     Indication: ECZEMA
     Dosage: 1 APPLICATION
     Dates: start: 20110125
  6. UREMOL HC [Concomitant]
     Indication: PSORIASIS
     Dates: start: 201106

REACTIONS (1)
  - Small intestinal obstruction [Recovered/Resolved]
